FAERS Safety Report 7995350-6 (Version None)
Quarter: 2011Q4

REPORT INFORMATION
  Report Type: 
  Country: None (occurrence: None)
  Receive Date: 20111220
  Receipt Date: 20111213
  Transmission Date: 20120403
  Serious: No
  Sender: FDA-Public Use
  Company Number: US-JNJFOC-20111206976

PATIENT
  Age: 42 Year
  Sex: Male

DRUGS (5)
  1. CIALIS [Concomitant]
     Dosage: AS NEEDED
     Route: 048
  2. LEXAPRO [Concomitant]
     Route: 048
  3. CLONAZEPAM [Concomitant]
     Route: 048
  4. INVEGA SUSTENNA [Suspect]
     Indication: SCHIZOAFFECTIVE DISORDER
     Route: 030
     Dates: start: 20111001
  5. NEURONTIN [Concomitant]
     Route: 048

REACTIONS (1)
  - PAIN [None]
